FAERS Safety Report 12565702 (Version 1)
Quarter: 2016Q3

REPORT INFORMATION
  Report Type: Spontaneous
  Country: FR (occurrence: FR)
  Receive Date: 20160718
  Receipt Date: 20160718
  Transmission Date: 20161109
  Serious: Yes (Hospitalization)
  Sender: FDA-Public Use
  Company Number: FR-PFIZER INC-2016342849

PATIENT
  Age: 79 Year
  Sex: Male

DRUGS (1)
  1. CORDARONE [Suspect]
     Active Substance: AMIODARONE HYDROCHLORIDE
     Indication: ATRIAL FIBRILLATION
     Dosage: 200 MG, DAILY
     Route: 048
     Dates: start: 2015, end: 20160609

REACTIONS (8)
  - Weight decreased [Unknown]
  - Hepatic function abnormal [Unknown]
  - Inflammation [Unknown]
  - Dehydration [Unknown]
  - Renal neoplasm [Unknown]
  - Hyperthyroidism [Recovering/Resolving]
  - Acute kidney injury [Unknown]
  - Malnutrition [Unknown]

NARRATIVE: CASE EVENT DATE: 20160608
